FAERS Safety Report 6523524-X (Version None)
Quarter: 2009Q4

REPORT INFORMATION
  Report Type: 
  Country: None (occurrence: None)
  Receive Date: 20091231
  Receipt Date: 20091221
  Transmission Date: 20100525
  Serious: Yes (Other)
  Sender: FDA-Public Use
  Company Number: PHEH2009US16213

PATIENT
  Sex: Female
  Weight: 76.8 kg

DRUGS (1)
  1. RECLAST [Suspect]
     Indication: OSTEOPOROSIS POSTMENOPAUSAL
     Dosage: 5 MG/100 ML, YEARLY
     Dates: start: 20091113

REACTIONS (6)
  - ANGIOEDEMA [None]
  - DYSPNOEA [None]
  - EYE SWELLING [None]
  - FLUSHING [None]
  - PERIORBITAL OEDEMA [None]
  - SWELLING FACE [None]
